FAERS Safety Report 8722637 (Version 2)
Quarter: 2012Q4

REPORT INFORMATION
  Report Type: Report from Study
  Country: DE (occurrence: DE)
  Receive Date: 20120814
  Receipt Date: 20120828
  Transmission Date: 20130627
  Serious: Yes (Hospitalization)
  Sender: FDA-Public Use
  Company Number: DE-ROCHE-1097006

PATIENT
  Age: 57 Year
  Sex: Male
  Weight: 64 kg

DRUGS (4)
  1. AVASTIN [Suspect]
     Indication: COLON CANCER
     Dosage: LAST DOSE 5MG/KG, last dose prior to sae 31/Jul/2012
     Dates: start: 20120521
  2. OXALIPLATIN [Suspect]
     Indication: COLON CANCER
     Dosage: last dose prior to SAE: 31/Jul/2012, last doe administered: 85 mg/me2
     Dates: start: 20120521
  3. LEUCOVORIN [Suspect]
     Indication: COLON CANCER
     Dosage: last dose prior to SAE: 31/Jul/2012, last dose administered: 200 mg/me2
     Dates: start: 20120521
  4. FLUOROURACIL [Suspect]
     Indication: COLON CANCER
     Dosage: last dose prior to SAE: 31/Jul/2012
     Dates: start: 20120521

REACTIONS (1)
  - Mental disorder due to a general medical condition [Recovered/Resolved]
